FAERS Safety Report 17050898 (Version 1)
Quarter: 2019Q4

REPORT INFORMATION
  Report Type: Spontaneous
  Country: GB (occurrence: GB)
  Receive Date: 20191120
  Receipt Date: 20191120
  Transmission Date: 20200122
  Serious: Yes (Disabling)
  Sender: FDA-Public Use
  Company Number: GB-AMGEN-GBRSP2019189171

PATIENT
  Age: 82 Year
  Sex: Female
  Weight: 61.6 kg

DRUGS (14)
  1. PROLIA [Suspect]
     Active Substance: DENOSUMAB
     Indication: OSTEOPOROSIS
     Dosage: 60 MILLIGRAM
     Route: 058
     Dates: start: 20190815
  2. METHOTREXATE. [Concomitant]
     Active Substance: METHOTREXATE
  3. CLENIL MODULITE [Concomitant]
     Active Substance: BECLOMETHASONE DIPROPIONATE
  4. BISOPROLOL [Concomitant]
     Active Substance: BISOPROLOL
  5. FERROUS GLUCONATE [Concomitant]
     Active Substance: FERROUS GLUCONATE
  6. CETIRIZINE [Concomitant]
     Active Substance: CETIRIZINE HYDROCHLORIDE
  7. COCODAMOL [Concomitant]
     Active Substance: ACETAMINOPHEN\CODEINE PHOSPHATE
  8. DIGOXIN. [Concomitant]
     Active Substance: DIGOXIN
  9. ATORVASTATIN [Concomitant]
     Active Substance: ATORVASTATIN
  10. HYDROXYCHLOROQUINE [Concomitant]
     Active Substance: HYDROXYCHLOROQUINE
  11. FOLIC ACID. [Concomitant]
     Active Substance: FOLIC ACID
  12. WARFARIN [Concomitant]
     Active Substance: WARFARIN
     Dates: start: 2016
  13. SALBUTAMOL [Concomitant]
     Active Substance: ALBUTEROL
  14. FUROSEMIDE. [Concomitant]
     Active Substance: FUROSEMIDE

REACTIONS (5)
  - Rash [Not Recovered/Not Resolved]
  - Anaemia [Unknown]
  - Skin ulcer [Not Recovered/Not Resolved]
  - Dermatitis [Not Recovered/Not Resolved]
  - C-reactive protein increased [Unknown]

NARRATIVE: CASE EVENT DATE: 20190820
